FAERS Safety Report 8551509-0 (Version None)
Quarter: 2012Q3

REPORT INFORMATION
  Report Type: 
  Country: None (occurrence: None)
  Receive Date: 20120730
  Receipt Date: 20120723
  Transmission Date: 20120928
  Serious: Yes (Death, Other)
  Sender: FDA-Public Use
  Company Number: US-PURDUE-USA-2012-0090408

PATIENT
  Age: 17 Month
  Sex: Male

DRUGS (1)
  1. OXYCODONE HCL [Suspect]
     Indication: ACCIDENTAL OVERDOSE

REACTIONS (2)
  - BRONCHOPNEUMONIA [None]
  - ACCIDENTAL OVERDOSE [None]
